FAERS Safety Report 7262170-X (Version None)
Quarter: 2011Q1

REPORT INFORMATION
  Report Type: 
  Country: None (occurrence: None)
  Receive Date: 20110130
  Receipt Date: 20101202
  Transmission Date: 20110831
  Serious: No
  Sender: FDA-Public Use
  Company Number: US-ABBOTT-10P-163-0689243-00

PATIENT
  Age: 57 Year
  Sex: Male

DRUGS (7)
  1. PREVACID [Concomitant]
     Indication: GASTROOESOPHAGEAL REFLUX DISEASE
  2. MERCAPTOPURINE [Concomitant]
     Indication: PRODUCT USED FOR UNKNOWN INDICATION
  3. IMODIUM [Concomitant]
     Indication: PRODUCT USED FOR UNKNOWN INDICATION
  4. VIAGRA [Concomitant]
     Indication: PRODUCT USED FOR UNKNOWN INDICATION
     Dosage: EVERY ONCE IN A WHILE
  5. LISINOPRIL AND HYDROCHLOROTHIAZIDE [Concomitant]
     Indication: BLOOD PRESSURE
  6. CELEXA [Concomitant]
     Indication: ANXIETY
  7. HUMIRA [Suspect]
     Indication: CROHN'S DISEASE
     Dosage: DAY 1 160 MG
     Dates: start: 20101118

REACTIONS (1)
  - BACK PAIN [None]
